FAERS Safety Report 22069082 (Version 1)
Quarter: 2023Q1

REPORT INFORMATION
  Report Type: Spontaneous
  Country: US (occurrence: US)
  Receive Date: 20230307
  Receipt Date: 20230307
  Transmission Date: 20230417
  Serious: No
  Sender: FDA-Public Use
  Company Number: US-AMNEAL PHARMACEUTICALS-2022-AMRX-01247

PATIENT
  Age: 67 Year
  Sex: Male

DRUGS (4)
  1. RYTARY [Suspect]
     Active Substance: CARBIDOPA\LEVODOPA
     Indication: Parkinson^s disease
     Dosage: 145 MILLIGRAM, 3X/DAY
     Route: 048
  2. RYTARY [Suspect]
     Active Substance: CARBIDOPA\LEVODOPA
     Dosage: 195 MILLIGRAM, 3X/DAY
     Route: 048
  3. RYTARY [Suspect]
     Active Substance: CARBIDOPA\LEVODOPA
     Dosage: 36.25-145 MG 1 CAPSULES, 4 /DAY 5 APART AT 7.30AM, 12.30 AM, 5.30 AM AND 10.30 AM
     Route: 048
     Dates: start: 20220513
  4. RYTARY [Suspect]
     Active Substance: CARBIDOPA\LEVODOPA
     Dosage: 195 MG 1 CAPSULES, 4 /DAY 5 HOURS APART AT 7.30AM, 12.30 AM, 5.30 AM AND 10.30 AM
     Route: 048
     Dates: start: 20220513

REACTIONS (2)
  - Feeling jittery [Unknown]
  - Feeling abnormal [Unknown]

NARRATIVE: CASE EVENT DATE: 20220429
